FAERS Safety Report 6908418-X (Version None)
Quarter: 2010Q3

REPORT INFORMATION
  Report Type: 
  Country: None (occurrence: None)
  Receive Date: 20100805
  Receipt Date: 20100723
  Transmission Date: 20110219
  Serious: Yes (Other)
  Sender: FDA-Public Use
  Company Number: DE-ELI_LILLY_AND_COMPANY-DE201003007875

PATIENT
  Age: 12 Year
  Sex: Male
  Weight: 29 kg

DRUGS (4)
  1. STRATTERA [Suspect]
     Dosage: 35 MG, DAILY (1/D)
     Route: 048
     Dates: start: 20070401, end: 20100701
  2. METHYLPHENIDAT [Concomitant]
     Dosage: UNK, UNKNOWN
     Route: 065
  3. RISPERIDON [Concomitant]
  4. ROXITHROMYCIN [Concomitant]

REACTIONS (7)
  - ASCITES [None]
  - ASTERIXIS [None]
  - BLOOD BILIRUBIN INCREASED [None]
  - CONFUSIONAL STATE [None]
  - CONTUSION [None]
  - JAUNDICE [None]
  - PALMAR ERYTHEMA [None]
